FAERS Safety Report 4902473-4 (Version None)
Quarter: 2006Q1

REPORT INFORMATION
  Report Type: 
  Country: None (occurrence: None)
  Receive Date: 20060202
  Receipt Date: 20060201
  Transmission Date: 20060701
  Serious: Yes (Hospitalization, Other)
  Sender: FDA-Public Use
  Company Number: HQWYE299311JAN06

PATIENT
  Age: 79 Year
  Sex: Female

DRUGS (4)
  1. PANTOZOL (PANTOPRAZOLE, TABLET, DELAYED RELEASE) [Suspect]
     Dosage: 40 MG 1X PER 1 DAY
     Route: 048
  2. ARAVA [Suspect]
     Indication: RHEUMATOID ARTHRITIS
     Dosage: 10 MG 1X PER 1 DAY
  3. DICLOFENAC (DICLOFENAC, ) [Suspect]
     Indication: RHEUMATOID ARTHRITIS
     Dosage: 100 MG 1X PER 1 DAY
  4. PREDNISOLONE [Suspect]
     Indication: RHEUMATOID ARTHRITIS
     Dosage: 5 MG 1X PER 1 DAY

REACTIONS (13)
  - CHOLECYSTITIS [None]
  - CHOLELITHIASIS [None]
  - DUODENAL ULCER [None]
  - DUODENAL ULCER PERFORATION [None]
  - ESCHERICHIA SEPSIS [None]
  - ESCHERICHIA URINARY TRACT INFECTION [None]
  - GALLBLADDER DISORDER [None]
  - GALLBLADDER FISTULA [None]
  - GASTROINTESTINAL NECROSIS [None]
  - GENERAL PHYSICAL HEALTH DETERIORATION [None]
  - INTESTINAL ISCHAEMIA [None]
  - MECHANICAL ILEUS [None]
  - REFLUX OESOPHAGITIS [None]
